FAERS Safety Report 4971399-2 (Version None)
Quarter: 2006Q2

REPORT INFORMATION
  Report Type: 
  Country: None (occurrence: None)
  Receive Date: 20060413
  Receipt Date: 20060403
  Transmission Date: 20061013
  Serious: Yes (Other)
  Sender: FDA-Public Use
  Company Number: PHBS2006BR05045

PATIENT
  Age: 47 Year
  Sex: Female
  Weight: 44 kg

DRUGS (3)
  1. ZELMAC [Suspect]
     Indication: ABDOMINAL PAIN
     Dosage: 6 MG, QD
     Route: 048
     Dates: start: 20040101
  2. ZELMAC [Suspect]
     Dosage: 6 MG, QD
     Route: 048
     Dates: start: 20060213
  3. FISOFLAVONA [Concomitant]
     Indication: HORMONE REPLACEMENT THERAPY

REACTIONS (9)
  - ABDOMINAL PAIN [None]
  - BACK PAIN [None]
  - CHILLS [None]
  - DEPRESSION [None]
  - DIARRHOEA [None]
  - DIZZINESS [None]
  - HEADACHE [None]
  - RETCHING [None]
  - VIRAL INFECTION [None]
